FAERS Safety Report 24437329 (Version 1)
Quarter: 2024Q4

REPORT INFORMATION
  Report Type: Spontaneous
  Country: US (occurrence: None)
  Receive Date: 20241011
  Receipt Date: 20241011
  Transmission Date: 20250115
  Serious: Yes (Hospitalization)
  Sender: Public
  Company Number: None

PATIENT
  Age: 77 Year
  Sex: Male

DRUGS (2)
  1. RIVAROXABAN [Suspect]
     Active Substance: RIVAROXABAN
     Indication: Atrial fibrillation
     Dosage: OTHER FREQUENCY : PM;?
     Route: 048
     Dates: end: 20240614
  2. AMIODARONE HYDROCHLORIDE [Suspect]
     Active Substance: AMIODARONE HYDROCHLORIDE
     Indication: Atrial fibrillation
     Dosage: FREQUENCY : DAILY;?
     Route: 048
     Dates: start: 20240108

REACTIONS (8)
  - Coagulopathy [None]
  - International normalised ratio increased [None]
  - Accidental overdose [None]
  - Substance use [None]
  - Accidental exposure to product [None]
  - Adulterated product [None]
  - Drug interaction [None]
  - Therapy interrupted [None]

NARRATIVE: CASE EVENT DATE: 20240614
